FAERS Safety Report 12581511 (Version 2)
Quarter: 2016Q3

REPORT INFORMATION
  Report Type: Spontaneous
  Country: US (occurrence: US)
  Receive Date: 20160721
  Receipt Date: 20160805
  Transmission Date: 20161109
  Serious: Yes (Death, Life-Threatening)
  Sender: FDA-Public Use
  Company Number: US-AMGEN-USASP2016092976

PATIENT
  Age: 20 Year
  Sex: Female
  Weight: 65 kg

DRUGS (4)
  1. GEMTUZUMAB OZOGAMICIN [Suspect]
     Active Substance: GEMTUZUMAB OZOGAMICIN
     Indication: ACUTE MYELOID LEUKAEMIA RECURRENT
     Dosage: 5 MG, DAY 4,7,10 OF REINDUCTION THERAPY
     Route: 042
     Dates: start: 20160529, end: 20160604
  2. CYTARABINE. [Suspect]
     Active Substance: CYTARABINE
     Indication: ACUTE MYELOID LEUKAEMIA RECURRENT
     Dosage: 3500 MG, QD X 5 DOSES
     Route: 042
     Dates: start: 20160526
  3. NEUPOGEN [Suspect]
     Active Substance: FILGRASTIM
     Indication: SUPPORTIVE CARE
     Dosage: 350 MCG, 1X/DAY
     Route: 042
     Dates: start: 20160525
  4. FLUDARABINE PHOSPHATE. [Suspect]
     Active Substance: FLUDARABINE PHOSPHATE
     Indication: ACUTE MYELOID LEUKAEMIA RECURRENT
     Dosage: 50 MG, QD X 5 DOSES
     Route: 042
     Dates: start: 20160526

REACTIONS (1)
  - Acute kidney injury [Fatal]

NARRATIVE: CASE EVENT DATE: 20160611
